FAERS Safety Report 23773788 (Version 1)
Quarter: 2024Q2

REPORT INFORMATION
  Report Type: Spontaneous
  Country: GR (occurrence: GR)
  Receive Date: 20240423
  Receipt Date: 20240423
  Transmission Date: 20240715
  Serious: Yes (Hospitalization, Other)
  Sender: FDA-Public Use
  Company Number: GR-ELI_LILLY_AND_COMPANY-GR202312000872

PATIENT
  Age: 86 Year
  Sex: Female

DRUGS (1)
  1. TERIPARATIDE [Suspect]
     Active Substance: TERIPARATIDE
     Indication: Osteoporosis
     Dosage: 20 UG, DAILY
     Route: 058
     Dates: start: 202309, end: 202310

REACTIONS (11)
  - Transient ischaemic attack [Recovering/Resolving]
  - Transient ischaemic attack [Recovering/Resolving]
  - Aphasia [Recovering/Resolving]
  - Blood glucose abnormal [Recovered/Resolved]
  - Dysphagia [Recovered/Resolved]
  - Decreased appetite [Recovered/Resolved]
  - Pain in jaw [Recovered/Resolved]
  - Balance disorder [Recovered/Resolved]
  - Weight decreased [Recovering/Resolving]
  - Amnesia [Recovering/Resolving]
  - Dysarthria [Recovering/Resolving]
